APPROVED DRUG PRODUCT: DIACOMIT
Active Ingredient: STIRIPENTOL
Strength: 250MG/PACKET
Dosage Form/Route: FOR SUSPENSION;ORAL
Application: N207223 | Product #001
Applicant: BIOCODEX SA
Approved: Aug 20, 2018 | RLD: Yes | RS: No | Type: RX

EXCLUSIVITY:
Code: ODE-403 | Date: Jul 14, 2029